FAERS Safety Report 25272547 (Version 1)
Quarter: 2025Q2

REPORT INFORMATION
  Report Type: Spontaneous
  Country: ES (occurrence: ES)
  Receive Date: 20250506
  Receipt Date: 20250506
  Transmission Date: 20250716
  Serious: Yes (Other)
  Sender: BIOCODEX
  Company Number: ES-BIOCODEX2-2025000442

PATIENT
  Age: 18 Month
  Sex: Male

DRUGS (7)
  1. DIACOMIT [Suspect]
     Active Substance: STIRIPENTOL
     Indication: Severe myoclonic epilepsy of infancy
     Dosage: DIACOMIT 250 MG SACHETS DILUTED IN 10 ML OF WATER BEGINS: 1 WEEK: 4 ML EVERY 12 HOURS
     Route: 065
     Dates: start: 20250129
  2. DIACOMIT [Suspect]
     Active Substance: STIRIPENTOL
     Indication: Severe myoclonic epilepsy of infancy
     Dosage: 2 WEEK: 6 ML EVERY 12 HOURS
     Route: 065
     Dates: start: 20250129
  3. DIACOMIT [Suspect]
     Active Substance: STIRIPENTOL
     Indication: Severe myoclonic epilepsy of infancy
     Dosage: 3 WEEK: 8 ML EVERY 12 HOURS
     Route: 065
     Dates: start: 20250129
  4. DIACOMIT [Suspect]
     Active Substance: STIRIPENTOL
     Indication: Severe myoclonic epilepsy of infancy
     Dosage: 4 WEEK: 250 MG EVERY 12 HOURS AND CONTINUE
     Route: 065
     Dates: start: 20250129
  5. LEVETIRACETAM [Concomitant]
     Active Substance: LEVETIRACETAM
     Indication: Product used for unknown indication
     Dosage: 2 ML EVERY 12 HOURS
     Route: 065
  6. VALPROATE [Concomitant]
     Active Substance: VALPROIC ACID
     Indication: Severe myoclonic epilepsy of infancy
     Dosage: 100 MG EVERY 12 HOURS
     Route: 065
     Dates: start: 20240409
  7. VALPROATE [Concomitant]
     Active Substance: VALPROIC ACID
     Indication: Severe myoclonic epilepsy of infancy
     Dosage: 150 MG EVERY 12 HOURS
     Route: 065
     Dates: end: 20250331

REACTIONS (3)
  - Somnolence [Recovered/Resolved]
  - Off label use [Unknown]
  - Tonic convulsion [Unknown]

NARRATIVE: CASE EVENT DATE: 20250425
